FAERS Safety Report 4426089-1 (Version None)
Quarter: 2004Q3

REPORT INFORMATION
  Report Type: 
  Country: None (occurrence: None)
  Receive Date: 20040811
  Receipt Date: 20040727
  Transmission Date: 20050211
  Serious: Yes (Life-Threatening, Hospitalization)
  Sender: FDA-Public Use
  Company Number: F01200400219

PATIENT
  Age: 67 Year
  Sex: Female

DRUGS (7)
  1. OXALIPLATIN) - SOLUTION - 85 MG/M2 [Suspect]
     Indication: COLORECTAL CANCER
     Dosage: 160 MG Q2W (CUMULATIVE DOSE : 320 MG) , INTRAVENOUS
     Route: 042
     Dates: start: 20040112, end: 20040112
  2. OXALIPLATIN) - SOLUTION - 85 MG/M2 [Suspect]
     Indication: METASTASES TO LIVER
     Dosage: 160 MG Q2W (CUMULATIVE DOSE : 320 MG) , INTRAVENOUS
     Route: 042
     Dates: start: 20040112, end: 20040112
  3. FLUOROURACIL [Suspect]
     Dosage: 1940 MG (600 MG/M2 - 22 HOURS ON DAY 1, DAY 2) Q2W (CUMULATIVE DOSE : 19760 MG) , INTRAVENOUS
     Route: 042
     Dates: start: 20040119, end: 20040119
  4. (LEUVORIN) - SOLUTION - UNIT DOSE : UNKNOWN [Suspect]
     Dosage: 380 MG Q2W (CUMULATIVE DOSE : 1520 MG), INTRAVENOUS NOS
     Route: 042
     Dates: start: 20040119, end: 20040119
  5. METOPROLOL [Concomitant]
  6. METOCLOPRAMIDE [Concomitant]
  7. ONDANSETRON [Concomitant]

REACTIONS (9)
  - BLOOD SODIUM DECREASED [None]
  - BONE MARROW TOXICITY [None]
  - DEHYDRATION [None]
  - DIARRHOEA [None]
  - NAUSEA [None]
  - NEUTROPENIA [None]
  - THROMBOCYTOPENIA [None]
  - VOMITING [None]
  - WHITE BLOOD CELL COUNT DECREASED [None]
